FAERS Safety Report 6517618-2 (Version None)
Quarter: 2009Q4

REPORT INFORMATION
  Report Type: 
  Country: None (occurrence: None)
  Receive Date: 20091224
  Receipt Date: 20091214
  Transmission Date: 20100525
  Serious: Yes (Other)
  Sender: FDA-Public Use
  Company Number: PHHY2009GB56960

PATIENT
  Age: 40 Year
  Sex: Female
  Weight: 60 kg

DRUGS (8)
  1. DICLOFENAC [Suspect]
     Dosage: 75 MG, QD
  2. CITALOPRAM HYDROBROMIDE [Suspect]
  3. CLOPIDOGREL [Suspect]
  4. DIHYDROCODEINE BITARTRATE INJ [Suspect]
     Route: 048
  5. ENBREL [Suspect]
     Indication: PSORIATIC ARTHROPATHY
     Dosage: 25 MG, EVERY 2 WEEKS
     Route: 058
  6. FOLIC ACID [Suspect]
  7. HYDROXYCHLOROQUINE SULFATE [Suspect]
     Indication: RHEUMATOID ARTHRITIS
     Dosage: 200 MG, QD
     Route: 048
  8. METHOTREXATE [Suspect]
     Indication: RHEUMATOID ARTHRITIS
     Dosage: 25 MG, QD
     Route: 058

REACTIONS (1)
  - GALACTORRHOEA [None]
